FAERS Safety Report 18169236 (Version 3)
Quarter: 2025Q2

REPORT INFORMATION
  Report Type: Spontaneous
  Country: US (occurrence: US)
  Receive Date: 20200818
  Receipt Date: 20250423
  Transmission Date: 20250716
  Serious: Yes (Death, Hospitalization)
  Sender: ROCHE
  Company Number: US-ROCHE-2659757

PATIENT
  Age: 65 Year
  Sex: Male

DRUGS (6)
  1. OCREVUS [Suspect]
     Active Substance: OCRELIZUMAB
     Indication: Multiple sclerosis
     Route: 042
     Dates: start: 20171213, end: 20200214
  2. OCREVUS [Suspect]
     Active Substance: OCRELIZUMAB
     Indication: Primary progressive multiple sclerosis
  3. LANTUS [Concomitant]
     Active Substance: INSULIN GLARGINE
  4. METFORMIN [Concomitant]
     Active Substance: METFORMIN HYDROCHLORIDE
  5. MORPHINE [Concomitant]
     Active Substance: MORPHINE
     Indication: Pain
  6. ATIVAN [Concomitant]
     Active Substance: LORAZEPAM
     Indication: Anxiety

REACTIONS (5)
  - COVID-19 [Fatal]
  - Decubitus ulcer [Unknown]
  - Acute respiratory failure [Unknown]
  - Sepsis [Unknown]
  - Respiratory distress [Fatal]

NARRATIVE: CASE EVENT DATE: 20200421
